FAERS Safety Report 11357574 (Version 1)
Quarter: 2015Q3

REPORT INFORMATION
  Report Type: Spontaneous
  Country: US (occurrence: US)
  Receive Date: 20150803
  Receipt Date: 20150803
  Transmission Date: 20151125
  Serious: No
  Sender: FDA-Public Use
  Company Number: US-ELI_LILLY_AND_COMPANY-US201203008343

PATIENT
  Age: 53 Year
  Sex: Female

DRUGS (2)
  1. TRILEPTAL [Concomitant]
     Active Substance: OXCARBAZEPINE
  2. ZYPREXA [Suspect]
     Active Substance: OLANZAPINE

REACTIONS (2)
  - Feeling abnormal [Recovered/Resolved]
  - Weight increased [Recovered/Resolved]
